FAERS Safety Report 6221206-5 (Version None)
Quarter: 2009Q2

REPORT INFORMATION
  Report Type: 
  Country: None (occurrence: None)
  Receive Date: 20090610
  Receipt Date: 20090527
  Transmission Date: 20091009
  Serious: Yes (Other)
  Sender: FDA-Public Use
  Company Number: CA-ELI_LILLY_AND_COMPANY-CA200905005612

PATIENT
  Age: 50 Year
  Sex: Male

DRUGS (5)
  1. STRATTERA [Suspect]
     Indication: ATTENTION DEFICIT/HYPERACTIVITY DISORDER
     Dosage: 60 MG, UNKNOWN
     Route: 065
     Dates: start: 20050101
  2. PROSCAR [Concomitant]
     Dosage: UNK, UNKNOWN
     Route: 065
  3. CIPROFLOXACIN [Concomitant]
     Dosage: UNK, UNKNOWN
     Route: 065
  4. SULFATRIM [Concomitant]
     Dosage: UNK, UNKNOWN
     Route: 065
  5. NORFLOXACIN [Concomitant]
     Dosage: UNK, UNKNOWN
     Route: 065

REACTIONS (2)
  - BENIGN PROSTATIC HYPERPLASIA [None]
  - DRUG INTERACTION [None]
